FAERS Safety Report 5789312-7 (Version None)
Quarter: 2008Q2

REPORT INFORMATION
  Report Type: 
  Country: None (occurrence: None)
  Receive Date: 20080626
  Receipt Date: 20080618
  Transmission Date: 20081010
  Serious: Yes (Disabling)
  Sender: FDA-Public Use
  Company Number: US-MERCK-0806USA03738

PATIENT
  Age: 69 Year
  Sex: Female

DRUGS (4)
  1. JANUVIA [Suspect]
     Indication: TYPE 2 DIABETES MELLITUS
     Route: 048
     Dates: start: 20080301
  2. METHOTREXATE [Concomitant]
     Route: 065
     Dates: start: 20020101
  3. ASPIRIN [Concomitant]
     Route: 065
  4. METFORMIN [Concomitant]
     Route: 065

REACTIONS (2)
  - DRUG LEVEL DECREASED [None]
  - WHITE BLOOD CELL COUNT DECREASED [None]
